FAERS Safety Report 23796288 (Version 2)
Quarter: 2024Q2

REPORT INFORMATION
  Report Type: Spontaneous
  Country: US (occurrence: US)
  Receive Date: 20240430
  Receipt Date: 20240510
  Transmission Date: 20240715
  Serious: No
  Sender: FDA-Public Use
  Company Number: US-ABBVIE-5736502

PATIENT
  Age: 37 Year
  Sex: Male
  Weight: 109 kg

DRUGS (4)
  1. DURYSTA [Suspect]
     Active Substance: BIMATOPROST
     Indication: Glaucoma
     Route: 047
     Dates: start: 202402
  2. DURYSTA [Suspect]
     Active Substance: BIMATOPROST
     Indication: Intraocular pressure test
     Route: 047
  3. LOSARTAN [Concomitant]
     Active Substance: LOSARTAN
     Indication: Haemorrhage
  4. ZYRTEC [Concomitant]
     Active Substance: CETIRIZINE HYDROCHLORIDE
     Indication: Hypersensitivity

REACTIONS (2)
  - Vitreous floaters [Not Recovered/Not Resolved]
  - Paraesthesia [Not Recovered/Not Resolved]

NARRATIVE: CASE EVENT DATE: 20240401
